FAERS Safety Report 19193244 (Version 1)
Quarter: 2021Q2

REPORT INFORMATION
  Report Type: Spontaneous
  Country: US (occurrence: US)
  Receive Date: 20210428
  Receipt Date: 20210428
  Transmission Date: 20210717
  Serious: No
  Sender: FDA-Public Use
  Company Number: US-009507513-2104USA006885

PATIENT
  Age: 9 Year

DRUGS (1)
  1. ZERBAXA [Suspect]
     Active Substance: CEFTOLOZANE SULFATE\TAZOBACTAM SODIUM
     Indication: BACTERIAL INFECTION
     Dosage: UNK; FOR 28 DAYS

REACTIONS (2)
  - Off label use [Unknown]
  - Product use issue [Unknown]
